APPROVED DRUG PRODUCT: LOSARTAN POTASSIUM AND HYDROCHLOROTHIAZIDE
Active Ingredient: HYDROCHLOROTHIAZIDE; LOSARTAN POTASSIUM
Strength: 12.5MG;100MG
Dosage Form/Route: TABLET;ORAL
Application: A200180 | Product #002
Applicant: WATSON LABORATORIES INC
Approved: Jan 12, 2011 | RLD: No | RS: No | Type: DISCN